FAERS Safety Report 9584403 (Version 1)
Quarter: 2013Q4

REPORT INFORMATION
  Report Type: Spontaneous
  Country: US (occurrence: US)
  Receive Date: 20131002
  Receipt Date: 20131002
  Transmission Date: 20140711
  Serious: No
  Sender: FDA-Public Use
  Company Number: US-AMGEN-USASP2013053514

PATIENT
  Age: 57 Year
  Sex: Female
  Weight: 48.98 kg

DRUGS (15)
  1. ENBREL [Suspect]
     Indication: PRODUCT USED FOR UNKNOWN INDICATION
     Dosage: 50 MG, QWK
     Route: 058
  2. RELAFEN [Concomitant]
     Dosage: 500 MG, UNK
  3. SOMA [Concomitant]
     Dosage: 250 MG, UNK
  4. TOPAMAX [Concomitant]
     Dosage: 50 MG, UNK
  5. ARAVA [Concomitant]
     Dosage: 10 MG, UNK
  6. IMITREX                            /01044801/ [Concomitant]
     Dosage: 50 MG, UNK
  7. VERAPAMIL [Concomitant]
     Dosage: 100 MG ER, UNK
  8. LEXAPRO [Concomitant]
     Dosage: 10 MG, UNK
  9. VITAMIN D                          /00107901/ [Concomitant]
     Dosage: 1000 UNIT, UNK
  10. EXCEDRIN                           /00110301/ [Concomitant]
     Dosage: UNK
  11. CALCIUM [Concomitant]
     Dosage: 500 UNK, UNK
  12. MULTIVITAMINS, PLAIN [Concomitant]
     Dosage: UNK
  13. FOLIC ACID [Concomitant]
     Dosage: UNK
  14. WELCHOL [Concomitant]
     Dosage: 625 MG, UNK
  15. TYLENOL                            /00020001/ [Concomitant]
     Dosage: 325 MG, UNK

REACTIONS (1)
  - Sinusitis [Unknown]
